FAERS Safety Report 20623829 (Version 4)
Quarter: 2022Q3

REPORT INFORMATION
  Report Type: Spontaneous
  Country: US (occurrence: US)
  Receive Date: 20220322
  Receipt Date: 20220930
  Transmission Date: 20221027
  Serious: No
  Sender: FDA-Public Use
  Company Number: US-PFIZER INC-2021325130

PATIENT
  Age: 67 Year
  Sex: Female

DRUGS (3)
  1. IBRANCE [Suspect]
     Active Substance: PALBOCICLIB
     Indication: Breast cancer female
     Dosage: 125 MG
  2. VITAMIN K [Concomitant]
     Active Substance: PHYTONADIONE
     Dosage: UNK
  3. VITAMIN E [Concomitant]
     Active Substance: .ALPHA.-TOCOPHEROL
     Dosage: UNK

REACTIONS (9)
  - Gastric disorder [Unknown]
  - Feeling abnormal [Unknown]
  - Lymphoedema [Recovering/Resolving]
  - Swelling [Unknown]
  - Stomatitis [Unknown]
  - Mammogram abnormal [Unknown]
  - Blood disorder [Unknown]
  - Neoplasm progression [Unknown]
  - Eating disorder [Unknown]
